FAERS Safety Report 8606275-7 (Version None)
Quarter: 2012Q3

REPORT INFORMATION
  Report Type: 
  Country: None (occurrence: None)
  Receive Date: 20120820
  Receipt Date: 20120813
  Transmission Date: 20120928
  Serious: Yes (Hospitalization, Other)
  Sender: FDA-Public Use
  Company Number: US-TEVA-353939USA

PATIENT
  Age: 57 Year
  Sex: Male

DRUGS (4)
  1. FLOXURIDINE [Suspect]
     Indication: GASTRIC CANCER
     Dosage: 110 MG/KG OVER 24 HOURS ON DAYS 1, 8 AND 15
     Route: 042
     Dates: start: 20110101
  2. LEUCOVORIN CALCIUM [Suspect]
     Indication: GASTRIC CANCER
     Dosage: 500 MG/M2 OVER 24 HOURS ON DAYS 1, 8 AND 15
     Route: 042
     Dates: start: 20110101
  3. OXALIPLATIN [Suspect]
     Indication: GASTRIC CANCER
     Dosage: 85 MG/M2 OVER 2 HOURS ON DAYS 1 AND 15
     Route: 042
     Dates: start: 20110101
  4. DOCETAXEL [Suspect]
     Indication: GASTRIC CANCER
     Dosage: 25 MG/M2 OVER 30 MINUTES ON DAYS 1, 8 AND 15
     Route: 042
     Dates: start: 20110101

REACTIONS (2)
  - TUMOUR LYSIS SYNDROME [None]
  - RENAL FAILURE ACUTE [None]
